FAERS Safety Report 4869333-9 (Version None)
Quarter: 2005Q4

REPORT INFORMATION
  Report Type: 
  Country: None (occurrence: None)
  Receive Date: 20051228
  Receipt Date: 20051228
  Transmission Date: 20060501
  Serious: No
  Sender: FDA-Public Use
  Company Number: None

PATIENT
  Age: 50 Year
  Sex: Male
  Weight: 95.2554 kg

DRUGS (2)
  1. SILDENAFIL 100 MG [Suspect]
     Indication: BLOOD PRESSURE ABNORMAL
     Dosage: 1/2 PILL 1 HOUR BEFORE SEX INJ
     Dates: start: 20001001, end: 20040423
  2. SILDENAFIL 100 MG [Suspect]
     Indication: ERECTILE DYSFUNCTION
     Dosage: 1/2 PILL 1 HOUR BEFORE SEX INJ
     Dates: start: 20001001, end: 20040423

REACTIONS (3)
  - BLINDNESS UNILATERAL [None]
  - CEREBROVASCULAR ACCIDENT [None]
  - OPTIC NERVE DISORDER [None]
